FAERS Safety Report 4561052-1 (Version None)
Quarter: 2005Q1

REPORT INFORMATION
  Report Type: 
  Country: None (occurrence: None)
  Receive Date: 20050126
  Receipt Date: 20041006
  Transmission Date: 20050727
  Serious: No
  Sender: FDA-Public Use
  Company Number: US-BRISTOL-MYERS SQUIBB COMPANY-12724480

PATIENT
  Age: 72 Year
  Sex: Female
  Weight: 73 kg

DRUGS (5)
  1. GLUCOPHAGE [Suspect]
     Indication: DIABETES MELLITUS
     Route: 048
  2. GLYBURIDE [Concomitant]
  3. ZESTRIL [Concomitant]
  4. LANOXIN [Concomitant]
  5. LASIX [Concomitant]

REACTIONS (4)
  - FATIGUE [None]
  - HEART RATE INCREASED [None]
  - LETHARGY [None]
  - PRODUCTIVE COUGH [None]
